FAERS Safety Report 23850204 (Version 1)
Quarter: 2024Q2

REPORT INFORMATION
  Report Type: Spontaneous
  Country: GB (occurrence: GB)
  Receive Date: 20240513
  Receipt Date: 20240513
  Transmission Date: 20240716
  Serious: Yes (Death, Hospitalization)
  Sender: FDA-Public Use
  Company Number: GB-MYLANLABS-2024M1043289

PATIENT
  Age: 67 Year
  Sex: Male

DRUGS (5)
  1. ATORVASTATIN [Suspect]
     Active Substance: ATORVASTATIN
     Indication: Nephrotic syndrome
     Dosage: UNK
     Route: 065
  2. PREDNISOLONE [Suspect]
     Active Substance: PREDNISOLONE
     Indication: Nephrotic syndrome
     Dosage: 60 MILLIGRAM, QD
     Route: 048
  3. FUROSEMIDE [Suspect]
     Active Substance: FUROSEMIDE
     Indication: Nephrotic syndrome
     Dosage: UNK
     Route: 065
  4. HEPARIN [Suspect]
     Active Substance: HEPARIN SODIUM
     Indication: Nephrotic syndrome
     Dosage: UNK
     Route: 065
  5. HUMAN IMMUNOGLOBULIN G [Suspect]
     Active Substance: HUMAN IMMUNOGLOBULIN G
     Indication: Hypogammaglobulinaemia
     Dosage: UNK
     Route: 042

REACTIONS (2)
  - Therapy non-responder [Fatal]
  - Off label use [Unknown]
